FAERS Safety Report 19080667 (Version 4)
Quarter: 2021Q4

REPORT INFORMATION
  Report Type: Report from Study
  Country: US (occurrence: US)
  Receive Date: 20210331
  Receipt Date: 20211006
  Transmission Date: 20220303
  Serious: No
  Sender: FDA-Public Use
  Company Number: NVSC2021US073274

PATIENT
  Sex: Female

DRUGS (2)
  1. ENTRESTO [Suspect]
     Active Substance: SACUBITRIL\VALSARTAN
     Indication: Cardiac failure
     Dosage: 100 MG (49/51), BID
     Route: 048
     Dates: start: 202101
  2. ASPIRIN [Concomitant]
     Active Substance: ASPIRIN
     Indication: Product used for unknown indication
     Route: 065

REACTIONS (6)
  - Stress [Unknown]
  - Psychomotor hyperactivity [Unknown]
  - Abdominal distension [Unknown]
  - Weight fluctuation [Unknown]
  - Weight increased [Unknown]
  - Alopecia [Unknown]
